FAERS Safety Report 24304392 (Version 1)
Quarter: 2024Q3

REPORT INFORMATION
  Report Type: Report from Study
  Country: IE (occurrence: IE)
  Receive Date: 20240910
  Receipt Date: 20240910
  Transmission Date: 20241016
  Serious: Yes (Other)
  Sender: AMNEAL
  Company Number: IE-AMNEAL PHARMACEUTICALS-2024-AMRX-03275

PATIENT
  Age: 50 Year
  Sex: Female

DRUGS (15)
  1. ZOMIG [Suspect]
     Active Substance: ZOLMITRIPTAN
     Indication: Migraine
     Dosage: UNK
     Route: 065
  2. IXPRIM [Suspect]
     Active Substance: ACETAMINOPHEN\TRAMADOL HYDROCHLORIDE
     Indication: Migraine
     Dosage: UNK
     Route: 065
  3. ERENUMAB [Suspect]
     Active Substance: ERENUMAB
     Indication: Migraine
     Dosage: UNK
     Route: 065
     Dates: start: 2023
  4. RIMEGEPANT [Suspect]
     Active Substance: RIMEGEPANT
     Indication: Migraine
     Dosage: 75 MILLIGRAM, 1/DAY
     Route: 065
     Dates: start: 202308
  5. AMITRIPTYLINE [Suspect]
     Active Substance: AMITRIPTYLINE
     Indication: Migraine prophylaxis
     Dosage: 75 MILLIGRAM, 1X/DAY
     Route: 065
  6. CANDESARTAN [Suspect]
     Active Substance: CANDESARTAN
     Indication: Migraine prophylaxis
     Dosage: 16 MILLIGRAM, 1X/DAY
     Route: 065
  7. MIRTAZAPINE [Suspect]
     Active Substance: MIRTAZAPINE
     Indication: Sleep disorder
     Dosage: 15 MILLIGRAM
     Route: 065
  8. MIRTAZAPINE [Suspect]
     Active Substance: MIRTAZAPINE
     Indication: Affective disorder
  9. PROPRANOLOL [Suspect]
     Active Substance: PROPRANOLOL HYDROCHLORIDE
     Indication: Migraine prophylaxis
     Dosage: UNK
     Route: 048
     Dates: start: 2023
  10. TOPIRAMATE [Suspect]
     Active Substance: TOPIRAMATE
     Indication: Migraine prophylaxis
     Dosage: 25 MILLIGRAM, 2 /DAY
     Route: 048
  11. BOTOX [Suspect]
     Active Substance: ONABOTULINUMTOXINA
     Indication: Product used for unknown indication
     Dosage: UNK
     Route: 065
     Dates: start: 2023
  12. DIHYDROERGOTAMINE [Suspect]
     Active Substance: DIHYDROERGOTAMINE
     Indication: Migraine
     Dosage: 11.25 MILLIGRAM
     Route: 042
     Dates: start: 2022
  13. MOTILIUM [Suspect]
     Active Substance: DOMPERIDONE
     Indication: Product used for unknown indication
     Dosage: UNK
     Route: 065
  14. VENLAFAXINE [Suspect]
     Active Substance: VENLAFAXINE HYDROCHLORIDE
     Indication: Migraine prophylaxis
     Dosage: UNK
     Route: 048
     Dates: start: 202012
  15. FREMANEZUMAB [Suspect]
     Active Substance: FREMANEZUMAB
     Indication: Migraine
     Dosage: UNK
     Route: 065
     Dates: start: 202112

REACTIONS (4)
  - Coronary artery stenosis [Unknown]
  - Arteriospasm coronary [Unknown]
  - Drug interaction [Unknown]
  - Therapeutic product effect incomplete [Unknown]
